FAERS Safety Report 5317577-4 (Version None)
Quarter: 2007Q2

REPORT INFORMATION
  Report Type: 
  Country: None (occurrence: None)
  Receive Date: 20070507
  Receipt Date: 20070426
  Transmission Date: 20071010
  Serious: Yes (Disabling)
  Sender: FDA-Public Use
  Company Number: PHBS2007NO06679

PATIENT
  Age: 67 Year
  Sex: Female

DRUGS (3)
  1. ZOMETA [Suspect]
     Indication: METASTASES TO BONE
     Dosage: 4 MG, UNK
     Dates: start: 20060118
  2. ADRIAMYCIN PFS [Concomitant]
     Dates: start: 20000601, end: 20061001
  3. TAXOTERE [Concomitant]
     Dates: start: 20061101

REACTIONS (5)
  - COUGH [None]
  - DYSPHONIA [None]
  - GENERAL PHYSICAL HEALTH DETERIORATION [None]
  - PARESIS [None]
  - PRODUCTIVE COUGH [None]
